FAERS Safety Report 13119165 (Version 1)
Quarter: 2017Q1

REPORT INFORMATION
  Report Type: Spontaneous
  Country: FR (occurrence: FR)
  Receive Date: 20170116
  Receipt Date: 20170116
  Transmission Date: 20170428
  Serious: Yes (Hospitalization)
  Sender: FDA-Public Use
  Company Number: PHHY2016FR164894

PATIENT
  Age: 51 Year
  Sex: Female

DRUGS (2)
  1. EXFORGE [Suspect]
     Active Substance: AMLODIPINE BESYLATE\VALSARTAN
     Indication: HYPERTENSION
     Dosage: UNK
     Route: 048
     Dates: start: 20160928, end: 20161102
  2. ALMOGRAN [Concomitant]
     Active Substance: ALMOTRIPTAN MALATE
     Indication: MIGRAINE
     Route: 065

REACTIONS (1)
  - Erythema nodosum [Recovered/Resolved]

NARRATIVE: CASE EVENT DATE: 20161028
